FAERS Safety Report 12355784 (Version 2)
Quarter: 2016Q2

REPORT INFORMATION
  Report Type: Spontaneous
  Country: US (occurrence: US)
  Receive Date: 20160511
  Receipt Date: 20160610
  Transmission Date: 20160815
  Serious: Yes (Other)
  Sender: FDA-Public Use
  Company Number: US-MDT-ADR-2016-00425

PATIENT
  Age: 10 Year
  Sex: Male
  Weight: 24 kg

DRUGS (32)
  1. INFLUENZA QUADRIVALENT IMMUNIZATION [Suspect]
     Active Substance: INFLUENZA VIRUS VACCINE QUADRIVALENT TYPE A+B
     Dates: start: 20150112
  2. PNEUMOCOCCAL VACCINE POLYVALENT NOS [Suspect]
     Active Substance: PNEUMOCOCCAL VACCINE POLYVALENT
     Dates: start: 20060126
  3. DIAZEPAM. [Suspect]
     Active Substance: DIAZEPAM
  4. INFLUENZA TRIVALENT IMMUNIZATION [Suspect]
     Active Substance: INFLUENZA VIRUS VACCINE TRIVALENT TYPE A+B
     Dates: start: 20130218
  5. MMR IMMUNIZATION [Suspect]
     Active Substance: MEASLES-MUMPS-RUBELLA VIRUS VACCINE, LIVE
     Dates: start: 20110830
  6. VARICELLA IMMUNIZATION [Suspect]
     Active Substance: VARICELLA-ZOSTER VIRUS STRAIN OKA/MERCK LIVE ANTIGEN
     Dates: start: 20071129
  7. HIB IMMUNIZATION [Suspect]
     Active Substance: HAEMOPHILUS INFLUENZAE TYPE B
     Dates: start: 20051008
  8. HIB IMMUNIZATION [Suspect]
     Active Substance: HAEMOPHILUS INFLUENZAE TYPE B
     Dates: start: 20061218
  9. INFLUENZA TRIVALENT  IMMUNIZATION [Suspect]
     Active Substance: INFLUENZA VIRUS VACCINE TRIVALENT TYPE A+B
     Dates: start: 20070309
  10. POLIOMYELITIS VACCINE NOS [Suspect]
     Active Substance: POLIOMYELITIS VACCINE
     Dates: start: 20110127
  11. LIORESAL [Suspect]
     Active Substance: BACLOFEN
  12. ERGOCALCIFEROL. [Suspect]
     Active Substance: ERGOCALCIFEROL
     Route: 048
  13. DTAP IMMUNIZATION [Suspect]
     Active Substance: DIPHTHERIA AND TETANUS TOXOIDS AND ACELLULAR PERTUSSIS VACCINE ADSORBED
     Dates: start: 20110314
  14. HIB+HEPATITIS B IMMUNIZATION [Suspect]
     Active Substance: HAEMOPHILUS INFLUENZAE TYPE B CAPSULAR POLYSACCHARIDE MENINGOCOCCAL OUTER MEMBRANE PROTEIN CONJUGATE ANTIGEN\HEPATITIS B VIRUS SUBTYPE ADW HBSAG SURFACE PROTEIN ANTIGEN
     Dates: start: 20051128
  15. INFLUENZA QUADRIVALENT IMMUNIZATION [Suspect]
     Active Substance: INFLUENZA VIRUS VACCINE QUADRIVALENT TYPE A+B
     Dates: start: 20151114
  16. POLIOMYELITIS VACCINE NOS [Suspect]
     Active Substance: POLIOMYELITIS VACCINE
     Dates: start: 20070813
  17. LIORESAL [Suspect]
     Active Substance: BACLOFEN
     Route: 037
  18. HEPATITIS B  IMMUNIZATION [Suspect]
     Active Substance: HEPATITIS B VIRUS VACCINE
     Dates: start: 20051008
  19. MMR IMMUNIZATION [Suspect]
     Active Substance: MEASLES-MUMPS-RUBELLA VIRUS VACCINE, LIVE
     Dates: start: 20060828
  20. VARICELLA IMMUNIZATION [Suspect]
     Active Substance: VARICELLA-ZOSTER VIRUS STRAIN OKA/MERCK LIVE ANTIGEN
     Dates: start: 20060828
  21. DTAP IMMUNIZATION [Suspect]
     Active Substance: DIPHTHERIA AND TETANUS TOXOIDS AND ACELLULAR PERTUSSIS VACCINE ADSORBED
     Dates: start: 20061218
  22. HEPATITIS A VACCINE NOS [Suspect]
     Active Substance: HEPATITIS A VACCINE, INACTIVATED
     Dates: start: 20070208
  23. HEPATITIS B  IMMUNIZATION [Suspect]
     Active Substance: HEPATITIS B VIRUS VACCINE
     Dates: start: 20060314
  24. POLYETHYLENE GLYCOL [Suspect]
     Active Substance: POLYETHYLENE GLYCOLS
     Route: 048
  25. DTAP IMMUNIZATION [Suspect]
     Active Substance: DIPHTHERIA AND TETANUS TOXOIDS AND ACELLULAR PERTUSSIS VACCINE ADSORBED
     Dates: start: 20060126
  26. HEPATITIS B  IMMUNIZATION [Suspect]
     Active Substance: HEPATITIS B VIRUS VACCINE
     Dates: start: 20050725
  27. PNEUMOCOCCAL VACCINE POLYVALENT NOS [Suspect]
     Active Substance: PNEUMOCOCCAL VACCINE POLYVALENT
     Dates: start: 20060828
  28. POLIOMYELITIS VACCINE NOS [Suspect]
     Active Substance: POLIOMYELITIS VACCINE
     Dates: start: 20051008
  29. HEPATITIS A VACCINE NOS [Suspect]
     Active Substance: HEPATITIS A VACCINE, INACTIVATED
     Dates: start: 20110830
  30. PNEUMOCOCCAL VACCINE POLYVALENT NOS [Suspect]
     Active Substance: PNEUMOCOCCAL VACCINE POLYVALENT
     Dates: start: 20051128
  31. INFLUENZA TRIVALENT  IMMUNIZATION [Suspect]
     Active Substance: INFLUENZA VIRUS VACCINE TRIVALENT TYPE A+B
     Dates: start: 20070208
  32. POLIOMYELITIS VACCINE NOS [Suspect]
     Active Substance: POLIOMYELITIS VACCINE
     Dates: start: 20060828

REACTIONS (3)
  - Vomiting [Recovered/Resolved]
  - Constipation [Recovered/Resolved]
  - Nausea [Recovered/Resolved]

NARRATIVE: CASE EVENT DATE: 20160220
